FAERS Safety Report 10966682 (Version 1)
Quarter: 2015Q1

REPORT INFORMATION
  Report Type: Spontaneous
  Country: US (occurrence: None)
  Receive Date: 20150327
  Receipt Date: 20150327
  Transmission Date: 20150721
  Serious: Yes (Hospitalization, Disabling)
  Sender: FDA-Public Use
  Company Number: None

PATIENT
  Age: 53 Year
  Sex: Female
  Weight: 65.32 kg

DRUGS (10)
  1. N-ACETYL-L-CYSTEINE [Concomitant]
  2. MULTI VITAMINS [Concomitant]
  3. BROMELAIN [Concomitant]
     Active Substance: BROMELAINS
  4. CURCUMIN [Concomitant]
     Active Substance: CURCUMIN
  5. GAMMA AMINO BUTYRIC ACID [Concomitant]
  6. OLIVE LEAF EXTRACT [Concomitant]
  7. MINERALS [Concomitant]
     Active Substance: MINERALS
  8. HAWTHORNE BERRY EXTRACT [Concomitant]
  9. TAURINE [Concomitant]
     Active Substance: TAURINE
  10. ZITHROMAX [Suspect]
     Active Substance: AZITHROMYCIN DIHYDRATE
     Indication: BRONCHITIS
     Dosage: 1ST DOSE 2, THEN 1 PER DAY
     Route: 048
     Dates: start: 20150222, end: 20150223

REACTIONS (10)
  - Cough [None]
  - Retching [None]
  - Chest pain [None]
  - Atrial fibrillation [None]
  - Palpitations [None]
  - Heart rate irregular [None]
  - Vision blurred [None]
  - Diarrhoea [None]
  - Dyspnoea [None]
  - Vomiting [None]

NARRATIVE: CASE EVENT DATE: 20150223
